FAERS Safety Report 5159786-3 (Version None)
Quarter: 2006Q4

REPORT INFORMATION
  Report Type: 
  Country: None (occurrence: None)
  Receive Date: 20061129
  Receipt Date: 20051209
  Transmission Date: 20070319
  Serious: No
  Sender: FDA-Public Use
  Company Number: US-GLAXOSMITHKLINE-A0585249A

PATIENT
  Age: 30 Year
  Sex: Female
  Weight: 54.5 kg

DRUGS (3)
  1. WELLBUTRIN SR [Suspect]
     Indication: DEPRESSION
     Dosage: 150MG TWICE PER DAY
     Route: 048
     Dates: start: 20041201
  2. KLONOPIN [Concomitant]
     Indication: ANXIETY
     Dosage: .5MG PER DAY
  3. ADDERALL 10 [Concomitant]
     Dosage: 20MG TWICE PER DAY

REACTIONS (2)
  - ALOPECIA [None]
  - WEIGHT DECREASED [None]
